FAERS Safety Report 7226606-2 (Version None)
Quarter: 2011Q1

REPORT INFORMATION
  Report Type: 
  Country: None (occurrence: None)
  Receive Date: 20110107
  Receipt Date: 20110107
  Transmission Date: 20110831
  Serious: Yes (Hospitalization)
  Sender: FDA-Public Use
  Company Number: None

PATIENT
  Age: 66 Year
  Sex: Male
  Weight: 113 kg

DRUGS (1)
  1. METOLAZONE [Suspect]
     Dosage: 2.5 MG OTHER PO
     Route: 048
     Dates: start: 20100917, end: 20100921

REACTIONS (3)
  - HYPERCALCAEMIA [None]
  - ASTHENIA [None]
  - RENAL FAILURE ACUTE [None]
